FAERS Safety Report 14802718 (Version 1)
Quarter: 2018Q2

REPORT INFORMATION
  Report Type: Spontaneous
  Country: US (occurrence: US)
  Receive Date: 20180424
  Receipt Date: 20180424
  Transmission Date: 20180711
  Serious: Yes (Hospitalization)
  Sender: FDA-Public Use
  Company Number: US-PFIZER INC-2018161760

PATIENT
  Age: 44 Year
  Sex: Female

DRUGS (1)
  1. XELJANZ XR [Suspect]
     Active Substance: TOFACITINIB CITRATE
     Dosage: 11 MG, UNSPECIFIED FREQUENCY
     Dates: start: 201802, end: 201804

REACTIONS (1)
  - Large intestinal haemorrhage [Unknown]

NARRATIVE: CASE EVENT DATE: 20180409
